FAERS Safety Report 12478408 (Version 16)
Quarter: 2017Q3

REPORT INFORMATION
  Report Type: Report from Study
  Country: US (occurrence: US)
  Receive Date: 20160618
  Receipt Date: 20170724
  Transmission Date: 20171127
  Serious: Yes (Hospitalization, Other)
  Sender: FDA-Public Use
  Company Number: US-JNJFOC-20160513706

PATIENT
  Age: 82 Year
  Sex: Male

DRUGS (13)
  1. IMBRUVICA [Suspect]
     Active Substance: IBRUTINIB
     Indication: CHRONIC LYMPHOCYTIC LEUKAEMIA
     Route: 048
     Dates: start: 20160503, end: 20160606
  2. IMBRUVICA [Suspect]
     Active Substance: IBRUTINIB
     Indication: CHRONIC LYMPHOCYTIC LEUKAEMIA
     Route: 048
     Dates: start: 20160504
  3. IMBRUVICA [Suspect]
     Active Substance: IBRUTINIB
     Indication: CHRONIC LYMPHOCYTIC LEUKAEMIA
     Route: 048
     Dates: start: 20160701
  4. FLONASE [Concomitant]
     Active Substance: FLUTICASONE PROPIONATE
     Dosage: QD
  5. IMBRUVICA [Suspect]
     Active Substance: IBRUTINIB
     Indication: CHRONIC LYMPHOCYTIC LEUKAEMIA
     Route: 048
     Dates: start: 201610
  6. IMBRUVICA [Suspect]
     Active Substance: IBRUTINIB
     Indication: CHRONIC LYMPHOCYTIC LEUKAEMIA
     Route: 048
     Dates: start: 2017
  7. PREDNISONE. [Concomitant]
     Active Substance: PREDNISONE
  8. HYDROCHLOROTHIAZIDE. [Concomitant]
     Active Substance: HYDROCHLOROTHIAZIDE
     Indication: BLOOD PRESSURE MEASUREMENT
     Dosage: QD
  9. AMLODIPINE [Concomitant]
     Active Substance: AMLODIPINE BESYLATE
     Indication: BLOOD PRESSURE MEASUREMENT
     Dosage: QD
  10. LOSARTAN. [Concomitant]
     Active Substance: LOSARTAN
     Indication: BLOOD PRESSURE MEASUREMENT
     Dosage: QD
  11. AMBIEN [Concomitant]
     Active Substance: ZOLPIDEM TARTRATE
     Indication: SLEEP DISORDER
     Dosage: QHS
  12. SALBUTAMOL SULFATE [Concomitant]
     Active Substance: ALBUTEROL SULFATE
  13. RITUXAN [Concomitant]
     Active Substance: RITUXIMAB
     Dosage: QHS

REACTIONS (24)
  - Haemoglobin decreased [Unknown]
  - Brain neoplasm [Unknown]
  - Pain [Recovering/Resolving]
  - Muscular weakness [Unknown]
  - Pneumonia [Recovering/Resolving]
  - Laboratory test abnormal [Unknown]
  - Faeces discoloured [Unknown]
  - Blood glucose increased [Unknown]
  - Platelet count decreased [Recovering/Resolving]
  - Atrial fibrillation [Unknown]
  - Beta 2 microglobulin abnormal [Not Recovered/Not Resolved]
  - Blood iron decreased [Unknown]
  - Fatigue [Recovering/Resolving]
  - Chronic obstructive pulmonary disease [Unknown]
  - Depressed mood [Not Recovered/Not Resolved]
  - Dysarthria [Not Recovered/Not Resolved]
  - Vision blurred [Not Recovered/Not Resolved]
  - Fluid retention [Unknown]
  - Asthenia [Not Recovered/Not Resolved]
  - Influenza [Unknown]
  - Septic shock [Recovering/Resolving]
  - Peripheral swelling [Unknown]
  - Aphonia [Unknown]
  - Dyspnoea [Unknown]

NARRATIVE: CASE EVENT DATE: 2016
